FAERS Safety Report 4640961-9 (Version None)
Quarter: 2005Q2

REPORT INFORMATION
  Report Type: 
  Country: None (occurrence: None)
  Receive Date: 20050420
  Receipt Date: 20041206
  Transmission Date: 20051028
  Serious: Yes (Other)
  Sender: FDA-Public Use
  Company Number: US-MERCK-0412USA00777

PATIENT
  Age: 70 Year
  Sex: Male

DRUGS (4)
  1. VIOXX [Suspect]
     Indication: ARTHRALGIA
     Route: 048
     Dates: start: 20000420, end: 20000424
  2. VIOXX [Suspect]
     Route: 048
     Dates: start: 20000425
  3. KEFLEX [Concomitant]
     Indication: CELLULITIS
     Route: 065
  4. ROXICET [Concomitant]
     Indication: OSTEOARTHRITIS
     Route: 065

REACTIONS (18)
  - AMNESIA [None]
  - ANXIETY [None]
  - CEREBROVASCULAR ACCIDENT [None]
  - DEPRESSION [None]
  - DISORIENTATION [None]
  - DRY MOUTH [None]
  - DYSGRAPHIA [None]
  - ERECTILE DYSFUNCTION [None]
  - GASTRITIS [None]
  - HYPERTENSIVE CRISIS [None]
  - HYPOACUSIS [None]
  - INSOMNIA [None]
  - NAUSEA [None]
  - NEUROLOGICAL SYMPTOM [None]
  - OEDEMA [None]
  - READING DISORDER [None]
  - RENAL FAILURE [None]
  - SPEECH DISORDER [None]
